FAERS Safety Report 4880964-2 (Version None)
Quarter: 2005Q4

REPORT INFORMATION
  Report Type: 
  Country: None (occurrence: None)
  Receive Date: 20051223
  Receipt Date: 20050929
  Transmission Date: 20060501
  Serious: No
  Sender: FDA-Public Use
  Company Number: 05P-163-0312657-00

PATIENT
  Age: 45 Year
  Sex: Female
  Weight: 72.5755 kg

DRUGS (10)
  1. HUMIRA [Suspect]
     Indication: RHEUMATOID ARTHRITIS
     Dosage: 40 MG, 1 IN 2 WK, SUBCUTANEOUS
     Route: 058
     Dates: start: 20050527, end: 20050920
  2. SULFAZINE [Concomitant]
  3. HYDROXYCHLOROQUINE PHOSPHATE [Concomitant]
  4. FOLIC ACID [Concomitant]
  5. METHOTREXATE [Concomitant]
  6. FENOFIBRATE [Concomitant]
  7. TRAMADOL HCL [Concomitant]
  8. ESTROGENS CONJUGATED [Concomitant]
  9. LORATADINE [Concomitant]
  10. RESTASIS [Concomitant]

REACTIONS (3)
  - EAR PAIN [None]
  - INFLUENZA [None]
  - PHARYNGOLARYNGEAL PAIN [None]
